FAERS Safety Report 23118524 (Version 7)
Quarter: 2024Q1

REPORT INFORMATION
  Report Type: Report from Study
  Country: CN (occurrence: CN)
  Receive Date: 20231028
  Receipt Date: 20240328
  Transmission Date: 20240410
  Serious: Yes (Hospitalization, Other)
  Sender: FDA-Public Use
  Company Number: CN-002147023-NVSC2023CN228309

PATIENT
  Age: 62 Year
  Sex: Female
  Weight: 52 kg

DRUGS (12)
  1. FEMARA [Suspect]
     Active Substance: LETROZOLE
     Indication: Invasive lobular breast carcinoma
     Dosage: 2.5 MG, QD
     Route: 048
     Dates: start: 20230330, end: 20230912
  2. FEMARA [Suspect]
     Active Substance: LETROZOLE
     Dosage: 2.5 MG, QD
     Route: 048
     Dates: start: 20230915, end: 20231004
  3. FEMARA [Suspect]
     Active Substance: LETROZOLE
     Dosage: UNK
     Route: 065
     Dates: end: 20231110
  4. NIFEDIPINE [Concomitant]
     Active Substance: NIFEDIPINE
     Indication: Hypertension
     Dosage: 1 DOSAGE FORM, BID (SUSTAINED RELEASE TABLETS)
     Route: 065
     Dates: start: 2002
  5. IRBESARTAN [Concomitant]
     Active Substance: IRBESARTAN
     Indication: Hypertension
     Dosage: 1 DOSAGE FORM, QD
     Route: 065
     Dates: start: 202005
  6. LIRAGLUTIDE [Concomitant]
     Active Substance: LIRAGLUTIDE
     Indication: Diabetes mellitus
     Dosage: 0.6 MG, QD
     Route: 065
     Dates: start: 202208
  7. INSULIN ASPART [Concomitant]
     Active Substance: INSULIN ASPART
     Indication: Diabetes mellitus
     Dosage: 16 IU, BID (30)
     Route: 065
     Dates: start: 202208
  8. INSULIN ASPART [Concomitant]
     Active Substance: INSULIN ASPART
     Indication: Product used for unknown indication
     Dosage: UNK
     Route: 065
  9. OXYCODONE HYDROCHLORIDE [Concomitant]
     Active Substance: OXYCODONE HYDROCHLORIDE
     Indication: Back pain
     Dosage: 10 MG, QD (SUSTAINED RELEASE TABLETS)
     Route: 065
     Dates: start: 20230421
  10. BICYCLOL [Concomitant]
     Active Substance: BICYCLOL
     Indication: Alanine aminotransferase increased
     Dosage: 50 MG, TID
     Route: 065
     Dates: start: 20230427
  11. BICYCLOL [Concomitant]
     Active Substance: BICYCLOL
     Indication: Gamma-glutamyltransferase increased
  12. BICYCLOL [Concomitant]
     Active Substance: BICYCLOL
     Indication: Aspartate aminotransferase increased

REACTIONS (10)
  - Lacunar infarction [Recovering/Resolving]
  - Magnetic resonance imaging head abnormal [Unknown]
  - Hypoaesthesia [Recovering/Resolving]
  - Muscular weakness [Recovering/Resolving]
  - Tongue paralysis [Recovering/Resolving]
  - Facial paralysis [Recovering/Resolving]
  - Cerebral infarction [Unknown]
  - Disease progression [Unknown]
  - Hypotonia [Recovering/Resolving]
  - Limb discomfort [Not Recovered/Not Resolved]

NARRATIVE: CASE EVENT DATE: 20231004
